FAERS Safety Report 16439481 (Version 2)
Quarter: 2021Q2

REPORT INFORMATION
  Report Type: Spontaneous
  Country: US (occurrence: US)
  Receive Date: 20190617
  Receipt Date: 20210601
  Transmission Date: 20210716
  Serious: No
  Sender: FDA-Public Use
  Company Number: US-PFIZER INC-2019256738

PATIENT
  Age: 60 Year
  Sex: Female

DRUGS (2)
  1. LYRICA CR [Suspect]
     Active Substance: PREGABALIN
     Dosage: 165 MG, IN THE EVENING
     Route: 048
     Dates: start: 201901
  2. LYRICA CR [Suspect]
     Active Substance: PREGABALIN
     Dosage: 165 MG, 1X/DAY QAM (EVERY MORNING)
     Route: 048

REACTIONS (2)
  - COVID-19 [Unknown]
  - Hypoaesthesia [Unknown]
